FAERS Safety Report 9815773 (Version 2)
Quarter: 2014Q1

REPORT INFORMATION
  Report Type: Report from Study
  Country: US (occurrence: US)
  Receive Date: 20140114
  Receipt Date: 20140307
  Transmission Date: 20141002
  Serious: Yes (Hospitalization, Other)
  Sender: FDA-Public Use
  Company Number: PHEH2014US000651

PATIENT
  Sex: Female

DRUGS (2)
  1. EXTAVIA [Suspect]
     Indication: MULTIPLE SCLEROSIS
     Dosage: DISCONTINUED AS PREGNANT
     Route: 058
     Dates: start: 2011
  2. EXTAVIA [Suspect]
     Dosage: RESUMES AGAIN DUE TO EVENTS
     Route: 058

REACTIONS (3)
  - Hypoaesthesia [Recovered/Resolved]
  - Maternal exposure during pregnancy [Unknown]
  - Delivery [Unknown]
